FAERS Safety Report 16761207 (Version 1)
Quarter: 2019Q3

REPORT INFORMATION
  Report Type: Spontaneous
  Country: US (occurrence: US)
  Receive Date: 20190830
  Receipt Date: 20190830
  Transmission Date: 20191005
  Serious: No
  Sender: FDA-Public Use
  Company Number: US-ANIPHARMA-2019-US-008287

PATIENT
  Age: 65 Year
  Sex: Female
  Weight: 53.07 kg

DRUGS (7)
  1. SYMBALTA [Concomitant]
  2. UNSPECIFIED SLEEP AIDE [Concomitant]
  3. LYRICA [Concomitant]
     Active Substance: PREGABALIN
  4. XANADINE [Concomitant]
  5. ANASTROZOLE. [Suspect]
     Active Substance: ANASTROZOLE
     Indication: NEOPLASM MALIGNANT
     Dosage: 1 TABLET DAILY
     Route: 048
     Dates: start: 201803, end: 20180820
  6. UNSPECIFIED MUSCLE RELAXANT [Concomitant]
  7. HYDROCORTISONE. [Concomitant]
     Active Substance: HYDROCORTISONE

REACTIONS (2)
  - Condition aggravated [Not Recovered/Not Resolved]
  - Cold sweat [Unknown]

NARRATIVE: CASE EVENT DATE: 201803
